FAERS Safety Report 18687905 (Version 4)
Quarter: 2022Q4

REPORT INFORMATION
  Report Type: Spontaneous
  Country: JP (occurrence: JP)
  Receive Date: 20201231
  Receipt Date: 20221227
  Transmission Date: 20230113
  Serious: Yes (Hospitalization, Other)
  Sender: FDA-Public Use
  Company Number: JP-ASTELLAS-2020JP002192

PATIENT
  Age: 74 Year
  Sex: Female

DRUGS (6)
  1. XOSPATA [Suspect]
     Active Substance: GILTERITINIB
     Indication: Acute myeloid leukaemia
     Route: 048
     Dates: start: 20190601
  2. XOSPATA [Suspect]
     Active Substance: GILTERITINIB
     Route: 048
     Dates: end: 20221101
  3. NAUZELIN [Concomitant]
     Active Substance: DOMPERIDONE
     Indication: Nausea
     Dosage: UNK UNK, AS NEEDED
     Route: 065
  4. CYTARABINE [Concomitant]
     Active Substance: CYTARABINE
     Indication: Product used for unknown indication
     Dosage: LOW-DOSE, UNKNOWN FREQ.
     Route: 065
  5. ETOPOSIDE [Concomitant]
     Active Substance: ETOPOSIDE
     Indication: Product used for unknown indication
     Dosage: LOW-DOSE, UNKNOWN FREQ.
     Route: 065
  6. AZACITIDINE [Concomitant]
     Active Substance: AZACITIDINE
     Indication: Product used for unknown indication
     Dosage: UNK UNK, UNKNOWN FREQ.
     Route: 065
     Dates: start: 202102

REACTIONS (6)
  - Pyrexia [Recovered/Resolved]
  - Nausea [Recovered/Resolved]
  - Disease progression [Recovered/Resolved]
  - Malaise [Recovered/Resolved]
  - Acute myeloid leukaemia [Unknown]
  - Product use issue [Unknown]

NARRATIVE: CASE EVENT DATE: 20201001
